FAERS Safety Report 4835081-4 (Version None)
Quarter: 2005Q4

REPORT INFORMATION
  Report Type: 
  Country: None (occurrence: None)
  Receive Date: 20051121
  Receipt Date: 20051108
  Transmission Date: 20060501
  Serious: Yes (Other)
  Sender: FDA-Public Use
  Company Number: 2004098670

PATIENT
  Age: 42 Year
  Sex: Female
  Weight: 52.6173 kg

DRUGS (1)
  1. CELEBREX [Suspect]
     Indication: JOINT INJURY
     Dosage: 400 MG (200 MG, 2 IN 1 D), ORAL
     Route: 048
     Dates: start: 20030501, end: 20030101

REACTIONS (23)
  - ABASIA [None]
  - AMNESIA [None]
  - ANGER [None]
  - ANXIETY [None]
  - ARTHROPATHY [None]
  - BONE DISORDER [None]
  - BREAST CANCER [None]
  - CYANOSIS [None]
  - DISTURBANCE IN ATTENTION [None]
  - DRUG TOXICITY [None]
  - EYE MOVEMENT DISORDER [None]
  - HEART SOUNDS ABNORMAL [None]
  - HYPERHIDROSIS [None]
  - HYPOACUSIS [None]
  - MALAISE [None]
  - MUSCLE DISORDER [None]
  - MYOCARDIAL INFARCTION [None]
  - PAIN IN EXTREMITY [None]
  - PARALYSIS [None]
  - RENAL FAILURE [None]
  - TINNITUS [None]
  - VISUAL DISTURBANCE [None]
  - VOMITING [None]
